FAERS Safety Report 8857781 (Version 1)
Quarter: 2012Q4

REPORT INFORMATION
  Report Type: 
  Country: US (occurrence: US)
  Receive Date: 20121024
  Receipt Date: 20121024
  Transmission Date: 20130627
  Serious: Yes (Other)
  Sender: FDA-Public Use
  Company Number: US-TEVA-365671USA

PATIENT
  Sex: Male

DRUGS (1)
  1. AZILECT [Suspect]
     Indication: IMPULSE-CONTROL DISORDER
     Route: 048

REACTIONS (3)
  - Drug dependence [Unknown]
  - Drug level increased [Unknown]
  - Off label use [Unknown]
